FAERS Safety Report 21503865 (Version 1)
Quarter: 2022Q4

REPORT INFORMATION
  Report Type: Spontaneous
  Country: US (occurrence: None)
  Receive Date: 20221025
  Receipt Date: 20221025
  Transmission Date: 20230112
  Serious: Yes (Hospitalization, Other)
  Sender: FDA-Public Use
  Company Number: US-MLMSERVICE-20221010-3848809-1

PATIENT
  Age: 72 Year
  Sex: Female

DRUGS (1)
  1. CEFAZOLIN [Suspect]
     Active Substance: CEFAZOLIN
     Indication: Staphylococcal bacteraemia
     Dosage: UNKNOWN
     Route: 042

REACTIONS (3)
  - Hypoprothrombinaemia [Recovered/Resolved]
  - Coagulopathy [Recovered/Resolved]
  - Vitamin K decreased [Unknown]
